FAERS Safety Report 23844434 (Version 1)
Quarter: 2024Q2

REPORT INFORMATION
  Report Type: Spontaneous
  Country: US (occurrence: None)
  Receive Date: 20240510
  Receipt Date: 20240510
  Transmission Date: 20240716
  Serious: No
  Sender: FDA-Public Use
  Company Number: 2024A108675

PATIENT

DRUGS (2)
  1. SEROQUEL [Suspect]
     Active Substance: QUETIAPINE FUMARATE
     Route: 048
  2. PAXLOVID [Suspect]
     Active Substance: NIRMATRELVIR\RITONAVIR
     Indication: COVID-19
     Dosage: FOR 5 DAYS
     Route: 048
     Dates: start: 20240427, end: 20240428

REACTIONS (10)
  - COVID-19 [Unknown]
  - Anxiety [Unknown]
  - Nervousness [Unknown]
  - Insomnia [Not Recovered/Not Resolved]
  - Abdominal discomfort [Unknown]
  - Diverticulitis [Unknown]
  - Feeling abnormal [Not Recovered/Not Resolved]
  - Product after taste [Recovered/Resolved]
  - Diarrhoea [Unknown]
  - Product administration error [Unknown]

NARRATIVE: CASE EVENT DATE: 20240427
